FAERS Safety Report 5318819-1 (Version None)
Quarter: 2007Q2

REPORT INFORMATION
  Report Type: 
  Country: None (occurrence: None)
  Receive Date: 20070504
  Receipt Date: 20070504
  Transmission Date: 20071010
  Serious: Yes (Disabling)
  Sender: FDA-Public Use
  Company Number: None

PATIENT
  Age: 53 Year
  Sex: Male

DRUGS (13)
  1. CODEINE SUL TAB [Suspect]
     Indication: PAIN
     Dosage: PO ONCE
     Route: 048
     Dates: start: 20070314, end: 20070315
  2. FOSINOPRIL SODIUM [Suspect]
     Indication: HYPERTENSION
     Dosage: PO DAILY
     Route: 048
     Dates: start: 20060417, end: 20070315
  3. ASPIRIN [Concomitant]
  4. CITALOPRAM HYDROBROMIDE [Concomitant]
  5. CLONAZEPAM [Concomitant]
  6. CLONIDINE HCL [Concomitant]
  7. DOCUSATE NA [Concomitant]
  8. FELODIPINE [Concomitant]
  9. FERROUS SULFATE TAB [Concomitant]
  10. FLUNISOLIDE [Concomitant]
  11. FOSINOPRIL NA [Concomitant]
  12. ACETAMINOPHEN AND HYDROCODONE BITARTRATE [Concomitant]
  13. IBUPROFEN [Concomitant]

REACTIONS (4)
  - DYSPHAGIA [None]
  - DYSPNOEA [None]
  - SWELLING FACE [None]
  - SWOLLEN TONGUE [None]
